FAERS Safety Report 6073975-5 (Version None)
Quarter: 2009Q1

REPORT INFORMATION
  Report Type: 
  Country: None (occurrence: None)
  Receive Date: 20090211
  Receipt Date: 20090206
  Transmission Date: 20090719
  Serious: Yes (Life-Threatening)
  Sender: FDA-Public Use
  Company Number: US-BAYER-200837873NA

PATIENT
  Sex: Male

DRUGS (1)
  1. MAGNEVIST [Suspect]
     Indication: METASTASIS
     Dosage: TOTAL DAILY DOSE: 20 ML
     Route: 042
     Dates: start: 20081105, end: 20081105

REACTIONS (1)
  - RESPIRATORY ARREST [None]
